FAERS Safety Report 6040276-0 (Version None)
Quarter: 2009Q1

REPORT INFORMATION
  Report Type: 
  Country: None (occurrence: None)
  Receive Date: 20090116
  Receipt Date: 20080205
  Transmission Date: 20090719
  Serious: No
  Sender: FDA-Public Use
  Company Number: US-BRISTOL-MYERS SQUIBB COMPANY-14066112

PATIENT
  Age: 21 Year
  Sex: Female
  Weight: 150 kg

DRUGS (2)
  1. ABILIFY [Suspect]
     Indication: BIPOLAR DISORDER
     Route: 048
     Dates: end: 20080101
  2. ADDERALL 10 [Concomitant]
     Route: 048

REACTIONS (2)
  - DYSPHAGIA [None]
  - VISION BLURRED [None]
